FAERS Safety Report 11025979 (Version 3)
Quarter: 2015Q3

REPORT INFORMATION
  Report Type: Report from Study
  Country: US (occurrence: US)
  Receive Date: 20150414
  Receipt Date: 20150814
  Transmission Date: 20151125
  Serious: Yes (Death, Other)
  Sender: FDA-Public Use
  Company Number: US-GILEAD-2015-0148504

PATIENT
  Age: 15 Year
  Sex: Male

DRUGS (3)
  1. AMBRISENTAN [Suspect]
     Active Substance: AMBRISENTAN
     Indication: HEART DISEASE CONGENITAL
  2. AMBRISENTAN [Suspect]
     Active Substance: AMBRISENTAN
     Indication: PULMONARY HYPERTENSION
     Dosage: 10 MG, UNK
     Route: 065
     Dates: start: 201306, end: 20141123
  3. MACITENTAN [Concomitant]
     Active Substance: MACITENTAN

REACTIONS (2)
  - Off label use [Recovered/Resolved]
  - Pulmonary hypertension [Fatal]

NARRATIVE: CASE EVENT DATE: 20130403
